FAERS Safety Report 5098668-2 (Version None)
Quarter: 2006Q3

REPORT INFORMATION
  Report Type: 
  Country: None (occurrence: None)
  Receive Date: 20060905
  Receipt Date: 20060821
  Transmission Date: 20061208
  Serious: Yes (Hospitalization)
  Sender: FDA-Public Use
  Company Number: 2006S1006857

PATIENT
  Age: 70 Year
  Sex: Male

DRUGS (23)
  1. FENTANYL TRANSDERMAL SYSTEM [Suspect]
     Indication: HIP FRACTURE
     Dosage: 75 UG/HR;Q3D;TDER
     Dates: start: 20060201
  2. HYDROCODONE BITARTRATE AND ACETAMINOPHEN [Concomitant]
  3. ALPRAZOLAM [Concomitant]
  4. THEOPHYLLINE [Concomitant]
  5. CLONIDINE [Concomitant]
  6. FINASTERIDE [Concomitant]
  7. WARFARIN SODIUM [Concomitant]
  8. ZOLPIDEM TARTRATE [Concomitant]
  9. GLYCOLAX [Concomitant]
  10. DILTIAZEM HCL [Concomitant]
  11. FUROSEMIDE [Concomitant]
  12. ESCITALOPRAM [Concomitant]
  13. POTASSIUM [Concomitant]
  14. PREDNISONE TAB [Concomitant]
  15. TAMSULOSIN HCL [Concomitant]
  16. ALBUTEROL [Concomitant]
  17. ADVAIR DISKUS 100/50 [Concomitant]
  18. TIOTROPIUM BROMIDE [Concomitant]
  19. VITAMINS [Concomitant]
  20. DOCUSATE SODIUM [Concomitant]
  21. NATEGLINIDE [Concomitant]
  22. BRIMONIDINE TARTRATE [Concomitant]
  23. TRAVOPROST [Concomitant]

REACTIONS (5)
  - ANGER [None]
  - ANXIETY [None]
  - DRUG INEFFECTIVE [None]
  - HOSTILITY [None]
  - PHYSICAL ASSAULT [None]
